FAERS Safety Report 19793734 (Version 1)
Quarter: 2021Q3

REPORT INFORMATION
  Report Type: Spontaneous
  Country: DE (occurrence: DE)
  Receive Date: 20210906
  Receipt Date: 20210906
  Transmission Date: 20211014
  Serious: Yes (Hospitalization, Other)
  Sender: FDA-Public Use
  Company Number: DE-GLAXOSMITHKLINE-DECH2021059786

PATIENT
  Age: 74 Year
  Sex: Female
  Weight: 54 kg

DRUGS (2)
  1. DICLOFENAC [Suspect]
     Active Substance: DICLOFENAC
     Indication: PRODUCT USE IN UNAPPROVED INDICATION
     Dosage: UNK
     Route: 048
  2. MOVICOL HALF BEUTEL [Concomitant]
     Dosage: UNK
     Route: 048

REACTIONS (7)
  - Weight decreased [Recovering/Resolving]
  - Vomiting [Recovering/Resolving]
  - Duodenal ulcer [Recovering/Resolving]
  - Abdominal pain [Recovering/Resolving]
  - Constipation [Recovering/Resolving]
  - Haematochezia [Recovering/Resolving]
  - Flatulence [Recovering/Resolving]
